FAERS Safety Report 10022683 (Version 2)
Quarter: 2014Q1

REPORT INFORMATION
  Report Type: Spontaneous
  Country: FR (occurrence: FR)
  Receive Date: 20140319
  Receipt Date: 20140321
  Transmission Date: 20141002
  Serious: Yes (Life-Threatening, Hospitalization, Other)
  Sender: FDA-Public Use
  Company Number: FR-PFIZER INC-2014077541

PATIENT
  Age: 31 Year
  Sex: Male

DRUGS (1)
  1. ADVIL [Suspect]
     Indication: NASOPHARYNGITIS
     Dosage: 800 MG, SINGLE
     Route: 048
     Dates: start: 20131128, end: 20131128

REACTIONS (4)
  - Angioedema [Recovered/Resolved]
  - Bronchospasm [Recovered/Resolved]
  - Hypoxia [Recovered/Resolved]
  - Bacterial test positive [Unknown]
